FAERS Safety Report 6750098-0 (Version None)
Quarter: 2010Q2

REPORT INFORMATION
  Report Type: 
  Country: None (occurrence: None)
  Receive Date: 20100601
  Receipt Date: 20100519
  Transmission Date: 20101027
  Serious: Yes (Hospitalization, Other)
  Sender: FDA-Public Use
  Company Number: PHHY2010MX18997

PATIENT
  Sex: Female

DRUGS (2)
  1. RASILEZ [Suspect]
     Indication: HYPERTENSION
     Dosage: 1 DF, QD
     Dates: start: 20100215
  2. ANTICOAGULANTS [Concomitant]
     Dosage: UNK
     Dates: start: 20100327

REACTIONS (2)
  - BLOOD PRESSURE INCREASED [None]
  - THROMBOSIS [None]
